FAERS Safety Report 16069595 (Version 1)
Quarter: 2019Q1

REPORT INFORMATION
  Report Type: Report from Study
  Country: CA (occurrence: CA)
  Receive Date: 20190314
  Receipt Date: 20190314
  Transmission Date: 20190418
  Serious: Yes (Hospitalization)
  Sender: FDA-Public Use
  Company Number: PHHY2017CA028924

PATIENT
  Age: 55 Year
  Sex: Male
  Weight: 71.2 kg

DRUGS (13)
  1. ENTRESTO [Suspect]
     Active Substance: SACUBITRIL\VALSARTAN
     Dosage: 1 DF, QD (97 MG SACUBITRIL, 103 MG VALSARTAN)
     Route: 048
     Dates: start: 20170526, end: 20170602
  2. ENTRESTO [Suspect]
     Active Substance: SACUBITRIL\VALSARTAN
     Dosage: 1 DF, BID (49 MG SACUBITRIL, 51 MG VALSARTAN)
     Route: 048
     Dates: start: 20170414, end: 20170525
  3. ENTRESTO [Suspect]
     Active Substance: SACUBITRIL\VALSARTAN
     Dosage: 1 DF, QD (49 MG SACUBITRIL, 51 MG VALSARTAN)
     Route: 048
     Dates: start: 20190215
  4. ENTRESTO [Suspect]
     Active Substance: SACUBITRIL\VALSARTAN
     Dosage: 1 DF, QD (24 MG SACUBITRIL, 26 MG VALSARTAN)
     Route: 048
     Dates: start: 20170113, end: 20170213
  5. SPIRONOLACTONE. [Concomitant]
     Active Substance: SPIRONOLACTONE
     Indication: PRODUCT USED FOR UNKNOWN INDICATION
     Dosage: 12.5 MG, UNK
     Route: 048
     Dates: start: 20190211
  6. RAMIPRIL. [Concomitant]
     Active Substance: RAMIPRIL
     Indication: PRODUCT USED FOR UNKNOWN INDICATION
     Dosage: 2.5 MG, UNK
     Route: 048
     Dates: start: 20181207, end: 20190212
  7. FUROSEMIDE. [Concomitant]
     Active Substance: FUROSEMIDE
     Indication: PRODUCT USED FOR UNKNOWN INDICATION
     Dosage: 40 MG, UNK
     Route: 048
     Dates: start: 20190215
  8. ENTRESTO [Suspect]
     Active Substance: SACUBITRIL\VALSARTAN
     Dosage: 1 DF, QD (49 MG SACUBITRIL, 51 MG VALSARTAN)
     Route: 048
     Dates: start: 20170113, end: 20170213
  9. ENTRESTO [Suspect]
     Active Substance: SACUBITRIL\VALSARTAN
     Dosage: 1 DF, QD (49 MG SACUBITRIL, 51 MG VALSARTAN)
     Route: 048
     Dates: start: 20170526, end: 20170602
  10. ENTRESTO [Suspect]
     Active Substance: SACUBITRIL\VALSARTAN
     Dosage: 1 DF, BID (24 MG SACUBITRIL, 26 MG VALSARTAN)
     Route: 048
     Dates: start: 20170213, end: 20170413
  11. ENTRESTO [Suspect]
     Active Substance: SACUBITRIL\VALSARTAN
     Dosage: 1 DF, BID (97 MG SACUBITRIL, 103 MG VALSARTAN)
     Route: 048
     Dates: start: 20170603, end: 201809
  12. METOPROLOL. [Concomitant]
     Active Substance: METOPROLOL
     Indication: PRODUCT USED FOR UNKNOWN INDICATION
     Dosage: 12.5 MG, UNK
     Route: 048
     Dates: start: 20190211
  13. ENTRESTO [Suspect]
     Active Substance: SACUBITRIL\VALSARTAN
     Indication: CARDIAC FAILURE
     Dosage: 1 DF, BID (24 MG SACUBITRIL, 26 MG VALSARTAN)
     Route: 048
     Dates: start: 20161221, end: 20170113

REACTIONS (8)
  - Pollakiuria [Recovered/Resolved]
  - Fatigue [Not Recovered/Not Resolved]
  - Cardiac failure acute [Recovered/Resolved]
  - Dizziness [Recovered/Resolved]
  - Anxiety [Not Recovered/Not Resolved]
  - Left ventricular dysfunction [Not Recovered/Not Resolved]
  - Product prescribing error [Unknown]
  - Dizziness [Recovered/Resolved]

NARRATIVE: CASE EVENT DATE: 20170113
